FAERS Safety Report 4481944-1 (Version None)
Quarter: 2004Q4

REPORT INFORMATION
  Report Type: 
  Country: None (occurrence: None)
  Receive Date: 20041020
  Receipt Date: 20041006
  Transmission Date: 20050328
  Serious: Yes (Hospitalization)
  Sender: FDA-Public Use
  Company Number: EWC041040959

PATIENT
  Sex: Male
  Weight: 80 kg

DRUGS (5)
  1. ZYPREXA [Suspect]
     Indication: SCHIZOPHRENIA
     Dosage: 10 MG/1 DAY
     Dates: start: 20040101
  2. MAVERAL (FLUVOXAMINE MALEATE) [Concomitant]
  3. FELISON (FLURAZEPAM HYDROCHLORIDE) [Concomitant]
  4. ASACOL [Concomitant]
  5. VALIUM [Concomitant]

REACTIONS (8)
  - BLOOD FIBRINOGEN INCREASED [None]
  - BLOOD POTASSIUM DECREASED [None]
  - CONDITION AGGRAVATED [None]
  - CROHN'S DISEASE [None]
  - INTERNATIONAL NORMALISED RATIO INCREASED [None]
  - PROTHROMBIN LEVEL INCREASED [None]
  - RESPIRATORY DISTRESS [None]
  - SCHIZOPHRENIA [None]
